FAERS Safety Report 20858887 (Version 1)
Quarter: 2022Q2

REPORT INFORMATION
  Report Type: Spontaneous
  Country: JP (occurrence: JP)
  Receive Date: 20220522
  Receipt Date: 20220522
  Transmission Date: 20220720
  Serious: Yes (Other)
  Sender: FDA-Public Use
  Company Number: JP-NOVARTISPH-NVSJ2022JP090459

PATIENT
  Age: 86 Year
  Sex: Female

DRUGS (2)
  1. TIMOLOL MALEATE\TRAVOPROST [Suspect]
     Active Substance: TIMOLOL MALEATE\TRAVOPROST
     Indication: Product used for unknown indication
     Dosage: UNK
     Route: 047
  2. LOXOPROFEN SODIUM [Suspect]
     Active Substance: LOXOPROFEN SODIUM
     Indication: Osteoarthritis
     Dosage: UNK
     Route: 065

REACTIONS (4)
  - Interstitial lung disease [Unknown]
  - Cough [Unknown]
  - Breast cancer [Unknown]
  - Osteoarthritis [Unknown]
